FAERS Safety Report 6048086-5 (Version None)
Quarter: 2009Q1

REPORT INFORMATION
  Report Type: 
  Country: None (occurrence: None)
  Receive Date: 20090123
  Receipt Date: 20090115
  Transmission Date: 20090719
  Serious: Yes (Other)
  Sender: FDA-Public Use
  Company Number: CA-ASTRAZENECA-2009UW01817

PATIENT
  Age: 73 Year
  Sex: Female

DRUGS (5)
  1. ATACAND [Suspect]
     Indication: HYPERTENSION
     Route: 048
     Dates: start: 20081201
  2. BISOPROLOL [Concomitant]
  3. NORVASC [Concomitant]
  4. ALTACE [Concomitant]
  5. CRESTOR [Concomitant]
     Indication: BLOOD CHOLESTEROL INCREASED
     Route: 048
     Dates: start: 20070101

REACTIONS (1)
  - URINE COLOUR ABNORMAL [None]
